FAERS Safety Report 8871650 (Version 1)
Quarter: 2012Q4

REPORT INFORMATION
  Report Type: 
  Country: US (occurrence: US)
  Receive Date: 20121030
  Receipt Date: 20121030
  Transmission Date: 20130627
  Serious: No
  Sender: FDA-Public Use
  Company Number: US-UCBSA-069385

PATIENT
  Age: 78 Year
  Sex: Female

DRUGS (1)
  1. KEPPRA [Suspect]
     Dates: start: 2010

REACTIONS (1)
  - Macrocytosis [Unknown]
